FAERS Safety Report 8226100-6 (Version None)
Quarter: 2012Q1

REPORT INFORMATION
  Report Type: 
  Country: None (occurrence: None)
  Receive Date: 20120319
  Receipt Date: 20120306
  Transmission Date: 20120608
  Serious: Yes (Other)
  Sender: FDA-Public Use
  Company Number: 2012000042

PATIENT
  Age: 47 Year
  Sex: Female

DRUGS (3)
  1. CLAVULIN (AMOXICILLIN TRIHYDRATE, CALVULANATE POTASSIUM) [Concomitant]
  2. ACEON [Suspect]
     Indication: HYPERTENSION
     Dosage: 1 DF, QD, ORAL
     Route: 048
     Dates: start: 20111206, end: 20111214
  3. HYOSCINE HBR HYT [Concomitant]

REACTIONS (8)
  - LIP SWELLING [None]
  - FATIGUE [None]
  - RESPIRATORY DISTRESS [None]
  - INSOMNIA [None]
  - COUGH [None]
  - ANGIOEDEMA [None]
  - DYSPNOEA [None]
  - SWELLING FACE [None]
